FAERS Safety Report 5040682-7 (Version None)
Quarter: 2006Q2

REPORT INFORMATION
  Report Type: 
  Country: None (occurrence: None)
  Receive Date: 20060629
  Receipt Date: 20060629
  Transmission Date: 20061013
  Serious: No
  Sender: FDA-Public Use
  Company Number: None

PATIENT
  Age: 40 Year
  Sex: Male
  Weight: 66.2252 kg

DRUGS (5)
  1. NICOTINE [Suspect]
     Indication: SMOKING CESSATION THERAPY
     Dosage: 21 MG TRANSDERMAL QD
     Route: 062
     Dates: start: 20060612, end: 20060614
  2. MULTIVITAMINS WITH MINERALS [Concomitant]
  3. ZOLOFT [Concomitant]
  4. FOLIC ACID [Concomitant]
  5. THORAZINE [Concomitant]

REACTIONS (3)
  - ERYTHEMA [None]
  - PRURITUS [None]
  - URTICARIA [None]
